FAERS Safety Report 5987204-1 (Version None)
Quarter: 2008Q4

REPORT INFORMATION
  Report Type: 
  Country: None (occurrence: None)
  Receive Date: 20081203
  Receipt Date: 20081124
  Transmission Date: 20090506
  Serious: Yes (Other)
  Sender: FDA-Public Use
  Company Number: 20643

PATIENT
  Age: 65 Year
  Sex: Male

DRUGS (4)
  1. CYTARABINE [Suspect]
     Indication: ACUTE MYELOID LEUKAEMIA
     Dates: start: 20050101
  2. IDARUBICIN HCL [Suspect]
     Indication: ACUTE MYELOID LEUKAEMIA
     Dates: start: 20050101
  3. THIOGUANINE [Suspect]
     Indication: ACUTE MYELOID LEUKAEMIA
     Dates: start: 20050101
  4. ENOKSAPARINE [Concomitant]

REACTIONS (16)
  - ARTHRITIS INFECTIVE [None]
  - BLOOD CULTURE POSITIVE [None]
  - DEAFNESS UNILATERAL [None]
  - FIBROSIS [None]
  - KLEBSIELLA INFECTION [None]
  - MASS [None]
  - MASTOIDITIS [None]
  - NEUTROPENIA [None]
  - OTITIS MEDIA CHRONIC [None]
  - POST PROCEDURAL COMPLICATION [None]
  - PYREXIA [None]
  - SCAR [None]
  - STAPHYLOCOCCAL INFECTION [None]
  - TEMPOROMANDIBULAR JOINT SYNDROME [None]
  - TRANSVERSE SINUS THROMBOSIS [None]
  - TYMPANIC MEMBRANE PERFORATION [None]
